FAERS Safety Report 6049156-8 (Version None)
Quarter: 2009Q1

REPORT INFORMATION
  Report Type: 
  Country: None (occurrence: None)
  Receive Date: 20090123
  Receipt Date: 20090112
  Transmission Date: 20090719
  Serious: Yes (Hospitalization, Other)
  Sender: FDA-Public Use
  Company Number: US-ELI_LILLY_AND_COMPANY-US200811002467

PATIENT
  Sex: Female
  Weight: 69.841 kg

DRUGS (7)
  1. FORTEO [Suspect]
     Indication: OSTEOPOROSIS
     Dosage: 20 UG, DAILY (1/D)
     Dates: start: 20080701
  2. ZOCOR [Concomitant]
     Dosage: 20 MG, DAILY (1/D)
  3. ASCORBIC ACID [Concomitant]
  4. ERGOCALCIFEROL [Concomitant]
  5. CALCIUM CARBONATE [Concomitant]
  6. ASPIRIN [Concomitant]
     Dosage: 81 MG, DAILY (1/D)
  7. MULTI-VITAMIN [Concomitant]
     Dosage: UNK, DAILY (1/D)
     Route: 048

REACTIONS (2)
  - FALL [None]
  - PUBIC RAMI FRACTURE [None]
